FAERS Safety Report 8887821 (Version 1)
Quarter: 2012Q4

REPORT INFORMATION
  Report Type: 
  Country: ES (occurrence: ES)
  Receive Date: 20121106
  Receipt Date: 20121106
  Transmission Date: 20130627
  Serious: Yes (Other)
  Sender: FDA-Public Use
  Company Number: ES-AMGEN-ESPSP2012065825

PATIENT
  Sex: Male

DRUGS (2)
  1. NEULASTA [Suspect]
     Indication: CHEMOTHERAPY
     Dosage: UNK UNK, per chemo regim
     Dates: start: 2012
  2. ANTINEOPLASTIC AGENTS [Concomitant]
     Dosage: UNK

REACTIONS (1)
  - Neutrophil count decreased [Recovering/Resolving]
